FAERS Safety Report 5216892-2 (Version None)
Quarter: 2007Q1

REPORT INFORMATION
  Report Type: 
  Country: None (occurrence: None)
  Receive Date: 20070119
  Receipt Date: 20070109
  Transmission Date: 20070707
  Serious: Yes (Hospitalization)
  Sender: FDA-Public Use
  Company Number: 2006JP005081

PATIENT
  Age: 60 Year
  Sex: Male

DRUGS (12)
  1. PROGRAF [Suspect]
     Indication: RHEUMATOID ARTHRITIS
     Dosage: SEE IMAGE
     Route: 048
     Dates: start: 20060720, end: 20060913
  2. PROGRAF [Suspect]
     Indication: RHEUMATOID ARTHRITIS
     Dosage: SEE IMAGE
     Route: 048
     Dates: start: 20060914, end: 20060928
  3. PREDNISOLONE [Suspect]
     Indication: RHEUMATOID ARTHRITIS
     Dosage: 1 DF, UID/QD, ORAL
     Route: 048
  4. BERIZYM (ENZYMES NOS) CAPSULE [Concomitant]
  5. OSTEN (IPRIFLAVONE) TABLET [Concomitant]
  6. ALFAROL (ALFACALCIDOL) CAPSULE [Concomitant]
  7. MOBIC [Concomitant]
  8. CODEINE PHOSPHATE POWDER [Concomitant]
  9. PIROXICAM [Concomitant]
  10. FERROMIA (FERROUS CITRATE) [Concomitant]
  11. METHYCOBAL (MECOBALAMIN) [Concomitant]
  12. RIMATIL (BUCILLAMINE) [Concomitant]

REACTIONS (4)
  - CELLULITIS [None]
  - GASTRIC ULCER [None]
  - OSTEOMYELITIS [None]
  - TOOTH LOSS [None]
